FAERS Safety Report 18213114 (Version 2)
Quarter: 2020Q3

REPORT INFORMATION
  Report Type: Spontaneous
  Country: PH (occurrence: PH)
  Receive Date: 20200831
  Receipt Date: 20200921
  Transmission Date: 20201103
  Serious: Yes (Death, Other)
  Sender: FDA-Public Use
  Company Number: PH-ROCHE-2668088

PATIENT
  Age: 74 Year
  Sex: Male
  Weight: 80 kg

DRUGS (5)
  1. TOCILIZUMAB. [Suspect]
     Active Substance: TOCILIZUMAB
     Indication: COVID-19 PNEUMONIA
     Dosage: ONE DOSE
     Route: 041
     Dates: start: 20200528, end: 20200528
  2. HYDROCORTISONE. [Concomitant]
     Active Substance: HYDROCORTISONE
  3. MEROPENEM. [Concomitant]
     Active Substance: MEROPENEM
  4. PARACETAMOL [Concomitant]
     Active Substance: ACETAMINOPHEN
  5. DIPHENHYDRAMINE. [Concomitant]
     Active Substance: DIPHENHYDRAMINE

REACTIONS (7)
  - Hypotension [Fatal]
  - Intentional product use issue [Unknown]
  - Respiratory acidosis [Unknown]
  - Off label use [Unknown]
  - Cardiac arrest [Fatal]
  - Hyperkalaemia [Unknown]
  - Urine output decreased [Unknown]
